FAERS Safety Report 13136371 (Version 1)
Quarter: 2017Q1

REPORT INFORMATION
  Report Type: Spontaneous
  Country: US (occurrence: US)
  Receive Date: 20170122
  Receipt Date: 20170122
  Transmission Date: 20170428
  Serious: Yes (Hospitalization, Other)
  Sender: FDA-Public Use
  Company Number: US-AMGEN-USASP2017006876

PATIENT
  Age: 41 Year
  Sex: Female

DRUGS (3)
  1. ENBREL [Suspect]
     Active Substance: ETANERCEPT
     Indication: ANKYLOSING SPONDYLITIS
     Dosage: 50 MG, QWK
     Route: 065
  2. VICODIN [Suspect]
     Active Substance: ACETAMINOPHEN\HYDROCODONE BITARTRATE
     Indication: PRODUCT USED FOR UNKNOWN INDICATION
     Dosage: UNK
     Route: 065
  3. PREDNISONE. [Suspect]
     Active Substance: PREDNISONE
     Indication: PRODUCT USED FOR UNKNOWN INDICATION
     Dosage: UNK
     Route: 065

REACTIONS (42)
  - Dizziness [Unknown]
  - Accident at work [Unknown]
  - Arthritis [Unknown]
  - Dyspnoea [Unknown]
  - Hernia repair [Unknown]
  - Pneumonia [Recovered/Resolved]
  - Drug effect decreased [Unknown]
  - Condition aggravated [Unknown]
  - Finger deformity [Not Recovered/Not Resolved]
  - Arthralgia [Unknown]
  - General physical health deterioration [Unknown]
  - Injection site reaction [Unknown]
  - Throat irritation [Unknown]
  - Neck mass [Unknown]
  - Hormone level abnormal [Unknown]
  - Fungal infection [Unknown]
  - Urinary tract infection [Unknown]
  - Drug hypersensitivity [Unknown]
  - Malaise [Unknown]
  - Oophorectomy [Unknown]
  - Fallopian tube operation [Unknown]
  - Kidney infection [Unknown]
  - Rubber sensitivity [Unknown]
  - Skin burning sensation [Unknown]
  - Peripheral swelling [Unknown]
  - Hypoaesthesia [Unknown]
  - Bronchitis [Unknown]
  - Colon operation [Unknown]
  - Bladder operation [Unknown]
  - Diverticulitis [Unknown]
  - Joint swelling [Unknown]
  - Back pain [Unknown]
  - Pain [Unknown]
  - Exostosis [Unknown]
  - Cardiac disorder [Unknown]
  - Ingrown hair [Unknown]
  - Staphylococcal infection [Recovered/Resolved]
  - Tendonitis [Unknown]
  - Pain in extremity [Unknown]
  - Sinusitis [Recovered/Resolved]
  - Paraesthesia [Unknown]
  - Injection site pain [Unknown]

NARRATIVE: CASE EVENT DATE: 2007
